FAERS Safety Report 6445211-9 (Version None)
Quarter: 2009Q4

REPORT INFORMATION
  Report Type: 
  Country: None (occurrence: None)
  Receive Date: 20091118
  Receipt Date: 20091109
  Transmission Date: 20100525
  Serious: Yes (Other)
  Sender: FDA-Public Use
  Company Number: DE-MYLANLABS-2009S1019338

PATIENT
  Sex: Male

DRUGS (2)
  1. LORAZEPAM [Suspect]
     Indication: DRUG USE FOR UNKNOWN INDICATION
     Dates: start: 20080619, end: 20090901
  2. LORAZEPAM [Suspect]
     Dates: start: 20090901

REACTIONS (3)
  - DRUG DEPENDENCE [None]
  - MUSCLE SPASMS [None]
  - SPEECH DISORDER [None]
